FAERS Safety Report 4473493-1 (Version None)
Quarter: 2004Q3

REPORT INFORMATION
  Report Type: 
  Country: None (occurrence: None)
  Receive Date: 20040921
  Receipt Date: 20040507
  Transmission Date: 20050211
  Serious: Yes (Hospitalization, Other)
  Sender: FDA-Public Use
  Company Number: 2004017400

PATIENT
  Age: 22 Year
  Sex: Male
  Weight: 89 kg

DRUGS (4)
  1. DILANTIN [Suspect]
     Indication: ILL-DEFINED DISORDER
     Dosage: 400 MG (DAILY),
     Dates: start: 20040112, end: 20040201
  2. INTERFERON BETA (INTERFERON BETA) [Concomitant]
  3. CARBAMAZEPINE [Concomitant]
  4. LEVETIRACETAM [Concomitant]

REACTIONS (1)
  - STEVENS-JOHNSON SYNDROME [None]
